FAERS Safety Report 17762425 (Version 1)
Quarter: 2020Q2

REPORT INFORMATION
  Report Type: Spontaneous
  Country: EE (occurrence: EE)
  Receive Date: 20200508
  Receipt Date: 20200508
  Transmission Date: 20200714
  Serious: Yes (Other)
  Sender: FDA-Public Use
  Company Number: EE-BAYER-2020-073229

PATIENT
  Age: 65 Year
  Sex: Male

DRUGS (3)
  1. XOFIGO [Suspect]
     Active Substance: RADIUM RA-223 DICHLORIDE
     Indication: PROSTATE CANCER
     Dates: start: 20200228, end: 20200429
  2. MORPHIN [MORPHINE SULFATE] [Concomitant]
     Indication: PAIN
     Dosage: UNTIL 6 TIMES PER DAY
  3. GABAPENTINUM [Concomitant]
     Dosage: 300 MG, QD

REACTIONS (1)
  - Metastases to lung [Unknown]
